FAERS Safety Report 9338469 (Version 1)
Quarter: 2013Q2

REPORT INFORMATION
  Report Type: Spontaneous
  Country: GB (occurrence: GB)
  Receive Date: 20130610
  Receipt Date: 20130610
  Transmission Date: 20140414
  Serious: Yes (Hospitalization)
  Sender: FDA-Public Use
  Company Number: GB-BAYER-2013-068618

PATIENT
  Age: 82 Year
  Sex: Male

DRUGS (6)
  1. CIPROFLOXACIN [Suspect]
     Indication: OTITIS EXTERNA
     Route: 048
  2. CIPROFLOXACIN [Suspect]
     Indication: EAR PAIN
     Dosage: UNK
     Route: 048
  3. CIPROFLOXACIN [Suspect]
     Indication: OTITIS EXTERNA
     Dosage: UNK
     Route: 048
  4. CIPROFLOXACIN [Suspect]
     Indication: OTITIS EXTERNA
     Dosage: UNK
     Route: 048
  5. CANESTEN SOLUTION [Suspect]
     Indication: OTITIS EXTERNA
     Route: 061
  6. SOFRADEX [Suspect]
     Indication: OTITIS EXTERNA

REACTIONS (7)
  - Drug ineffective [None]
  - Ear pain [Recovered/Resolved]
  - VIIth nerve paralysis [Recovered/Resolved]
  - Ear pain [Recovering/Resolving]
  - Dysphagia [Recovering/Resolving]
  - Weight decreased [Recovering/Resolving]
  - Vocal cord paralysis [Recovering/Resolving]
